FAERS Safety Report 22234893 (Version 1)
Quarter: 2023Q2

REPORT INFORMATION
  Report Type: Spontaneous
  Country: US (occurrence: None)
  Receive Date: 20230419
  Receipt Date: 20230419
  Transmission Date: 20230721
  Serious: No
  Sender: FDA-Public Use
  Company Number: None

PATIENT
  Age: 74 Year
  Sex: Male
  Weight: 75.89 kg

DRUGS (13)
  1. ABIRATERONE ACETATE [Suspect]
     Active Substance: ABIRATERONE ACETATE
     Indication: Prostate cancer
     Dosage: 1000MG DAILY ORAL?
     Route: 048
  2. PREDNISONE [Suspect]
     Active Substance: PREDNISONE
     Indication: Prostate cancer
     Dosage: 5MG TWICE A DAY ORAL?
     Route: 048
  3. FLOMAX [Concomitant]
     Active Substance: TAMSULOSIN HYDROCHLORIDE
  4. GUAIFENESIN POWDER [Concomitant]
  5. HYOSCYAMINE [Concomitant]
  6. LASIX [Concomitant]
     Active Substance: FUROSEMIDE
  7. METFORMIN [Concomitant]
  8. OMEPRAZOLE [Concomitant]
  9. SOTALOL [Concomitant]
     Active Substance: SOTALOL
  10. SPIRONOLACTONE [Concomitant]
  11. TRAMADOL [Concomitant]
  12. VITMAIN C [Concomitant]
  13. XARELTO [Concomitant]

REACTIONS (1)
  - Hospice care [None]
